FAERS Safety Report 19707571 (Version 1)
Quarter: 2021Q3

REPORT INFORMATION
  Report Type: Spontaneous
  Country: US (occurrence: US)
  Receive Date: 20210817
  Receipt Date: 20210817
  Transmission Date: 20211014
  Serious: No
  Sender: FDA-Public Use
  Company Number: None

PATIENT
  Age: 79 Year
  Sex: Male
  Weight: 95 kg

DRUGS (13)
  1. POTASSIUM CHLORIDE ER 20MEQ [Concomitant]
  2. ASPIRIN 81MG [Concomitant]
     Active Substance: ASPIRIN
  3. METHYLPREDNISOLONE SODIUM SUCC 125MG [Concomitant]
  4. ATORVASTATIN 80MG [Concomitant]
     Active Substance: ATORVASTATIN
  5. BICALUTAMIDE 50MG [Concomitant]
     Active Substance: BICALUTAMIDE
  6. MAGNESIUM GLUCONATE 250MG [Concomitant]
  7. SPIRONOLACTONE 25MG [Concomitant]
     Active Substance: SPIRONOLACTONE
  8. ERLEADA [Suspect]
     Active Substance: APALUTAMIDE
     Indication: PROSTATE CANCER
     Route: 048
     Dates: start: 20200402
  9. FUROSEMIDE 20MG [Concomitant]
     Active Substance: FUROSEMIDE
  10. CALCIUM + D3 [Concomitant]
     Active Substance: CALCIUM\CHOLECALCIFEROL
  11. LUPRON DEPOT [Concomitant]
     Active Substance: LEUPROLIDE ACETATE
  12. LISINOPRIL. [Concomitant]
     Active Substance: LISINOPRIL
  13. ALLOPURINOL 300MG [Concomitant]
     Active Substance: ALLOPURINOL

REACTIONS (1)
  - Blood urine present [None]

NARRATIVE: CASE EVENT DATE: 20210817
